FAERS Safety Report 23061237 (Version 1)
Quarter: 2023Q4

REPORT INFORMATION
  Report Type: Spontaneous
  Country: JP (occurrence: JP)
  Receive Date: 20231013
  Receipt Date: 20231013
  Transmission Date: 20240110
  Serious: Yes (Death, Other)
  Sender: FDA-Public Use
  Company Number: JP-ABBVIE-5447846

PATIENT
  Age: 85 Year
  Sex: Male
  Weight: 69 kg

DRUGS (19)
  1. VENCLEXTA [Suspect]
     Active Substance: VENETOCLAX
     Indication: Acute myeloid leukaemia
     Dosage: 50 MILLIGRAM
     Route: 048
     Dates: start: 20230213, end: 20230316
  2. VENCLEXTA [Suspect]
     Active Substance: VENETOCLAX
     Indication: Acute myeloid leukaemia
     Dosage: 20 MILLIGRAM
     Route: 048
     Dates: start: 20230317, end: 20230326
  3. FILGRASTIM [Concomitant]
     Active Substance: FILGRASTIM
     Indication: Acute myeloid leukaemia
     Dosage: FORM STRENGTH: 75 MICROGRAM
     Dates: start: 20230228, end: 20230302
  4. FILGRASTIM [Concomitant]
     Active Substance: FILGRASTIM
     Indication: Acute myeloid leukaemia
     Dosage: FORM STRENGTH: 75 MICROGRAM
     Dates: start: 20230321, end: 20230323
  5. FILGRASTIM [Concomitant]
     Active Substance: FILGRASTIM
     Indication: Acute myeloid leukaemia
     Dosage: FORM STRENGTH: 75 MICROGRAM
     Dates: start: 20230415, end: 20230418
  6. FILGRASTIM [Concomitant]
     Active Substance: FILGRASTIM
     Indication: Acute myeloid leukaemia
     Dosage: FORM STRENGTH: 75 MICROGRAM
     Dates: start: 20230307, end: 20230309
  7. FILGRASTIM [Concomitant]
     Active Substance: FILGRASTIM
     Indication: Acute myeloid leukaemia
     Dosage: FORM STRENGTH: 75 MICROGRAM
     Dates: start: 20230328, end: 20230330
  8. VIDAZA [Suspect]
     Active Substance: AZACITIDINE
     Indication: Acute myeloid leukaemia
     Dosage: 140 MILLIGRAM
     Route: 042
     Dates: start: 20230313, end: 20230319
  9. VIDAZA [Suspect]
     Active Substance: AZACITIDINE
     Indication: Acute myeloid leukaemia
     Dosage: 140 MILLIGRAM
     Route: 042
     Dates: start: 20230214, end: 20230220
  10. SULFAMETHOXAZOLE AND TRIMETHOPRIM [Concomitant]
     Active Substance: SULFAMETHOXAZOLE\TRIMETHOPRIM
     Indication: Product used for unknown indication
     Dates: start: 20230203, end: 20230406
  11. LANSOPRAZOLE [Concomitant]
     Active Substance: LANSOPRAZOLE
     Indication: Product used for unknown indication
     Dates: start: 20230131, end: 20230406
  12. LEVOTHYROXINE SODIUM [Concomitant]
     Active Substance: LEVOTHYROXINE SODIUM
     Indication: Product used for unknown indication
     Dosage: HYDRATE
     Dates: end: 20230406
  13. GILTERITINIB [Suspect]
     Active Substance: GILTERITINIB
     Indication: Acute myeloid leukaemia
     Dosage: 80 MILLIGRAM
     Route: 048
     Dates: start: 20230207, end: 20230412
  14. URAPIDIL [Concomitant]
     Active Substance: URAPIDIL
     Indication: Product used for unknown indication
     Dates: start: 20230212, end: 20230406
  15. CANDESARTAN CILEXETIL [Concomitant]
     Active Substance: CANDESARTAN CILEXETIL
     Indication: Product used for unknown indication
     Dates: end: 20230406
  16. MAGNESIUM OXIDE [Concomitant]
     Active Substance: MAGNESIUM OXIDE
     Indication: Product used for unknown indication
     Dates: start: 20230131, end: 20230406
  17. POSACONAZOLE [Concomitant]
     Active Substance: POSACONAZOLE
     Indication: Product used for unknown indication
     Dates: start: 20230131, end: 20230406
  18. POSACONAZOLE [Concomitant]
     Active Substance: POSACONAZOLE
     Indication: Product used for unknown indication
     Dates: start: 20230414, end: 20230418
  19. Atracuria besylate [Concomitant]
     Indication: Product used for unknown indication

REACTIONS (8)
  - Pneumonia [Fatal]
  - Bacteraemia [Unknown]
  - Septic shock [Fatal]
  - Febrile neutropenia [Unknown]
  - Somnolence [Unknown]
  - Febrile neutropenia [Unknown]
  - Myelosuppression [Unknown]
  - Fungal infection [Unknown]

NARRATIVE: CASE EVENT DATE: 20230316
